FAERS Safety Report 7770836-8 (Version None)
Quarter: 2011Q3

REPORT INFORMATION
  Report Type: 
  Country: None (occurrence: None)
  Receive Date: 20110922
  Receipt Date: 20101130
  Transmission Date: 20111222
  Serious: No
  Sender: FDA-Public Use
  Company Number: US-ASTRAZENECA-2010SE56760

PATIENT
  Age: 50 Year
  Sex: Female
  Weight: 90.7 kg

DRUGS (4)
  1. SEROQUEL XR [Suspect]
     Indication: DEPRESSION
     Route: 048
  2. CYMBALTA [Concomitant]
  3. PRISTIQ [Concomitant]
  4. TRAZODONE HCL [Concomitant]

REACTIONS (4)
  - INSOMNIA [None]
  - INAPPROPRIATE SCHEDULE OF DRUG ADMINISTRATION [None]
  - TREMOR [None]
  - NAUSEA [None]
